FAERS Safety Report 8540313-5 (Version None)
Quarter: 2012Q3

REPORT INFORMATION
  Report Type: 
  Country: None (occurrence: None)
  Receive Date: 20120726
  Receipt Date: 20120716
  Transmission Date: 20120928
  Serious: Yes (Other)
  Sender: FDA-Public Use
  Company Number: GB-ROCHE-1090161

PATIENT
  Sex: Female

DRUGS (2)
  1. XOLAIR [Suspect]
     Indication: ASTHMA
     Dates: end: 20120501
  2. SALBUTAMOL SPRAY [Concomitant]

REACTIONS (8)
  - SINUS DISORDER [None]
  - MUSCLE TIGHTNESS [None]
  - FEELING ABNORMAL [None]
  - MUSCULAR WEAKNESS [None]
  - VISUAL IMPAIRMENT [None]
  - DIZZINESS [None]
  - SERUM SICKNESS [None]
  - MUSCLE STRAIN [None]
